FAERS Safety Report 7810388-7 (Version None)
Quarter: 2011Q4

REPORT INFORMATION
  Report Type: 
  Country: None (occurrence: None)
  Receive Date: 20111012
  Receipt Date: 20111004
  Transmission Date: 20120403
  Serious: Yes (Hospitalization, Other)
  Sender: FDA-Public Use
  Company Number: JP-ABBOTT-11P-087-0860422-00

PATIENT
  Sex: Female

DRUGS (6)
  1. RISPERIDONE [Concomitant]
     Indication: SCHIZOPHRENIA
     Route: 048
  2. HALOPERIDOL [Concomitant]
     Indication: SCHIZOPHRENIA
  3. ROHYPNOL [Concomitant]
     Indication: SCHIZOPHRENIA
     Route: 048
  4. HIRNAMIN [Concomitant]
     Indication: SCHIZOPHRENIA
     Route: 048
  5. AKINETON [Suspect]
     Indication: PRODUCT USED FOR UNKNOWN INDICATION
     Route: 048
  6. AKINETON [Suspect]
     Route: 050

REACTIONS (4)
  - ILEUS [None]
  - SCHIZOPHRENIA [None]
  - URINARY BLADDER RUPTURE [None]
  - ASCITES [None]
